FAERS Safety Report 6220942-4 (Version None)
Quarter: 2009Q2

REPORT INFORMATION
  Report Type: 
  Country: None (occurrence: None)
  Receive Date: 20090610
  Receipt Date: 20090601
  Transmission Date: 20091009
  Serious: Yes (Hospitalization, Other)
  Sender: FDA-Public Use
  Company Number: DE-AMGEN-UK349598

PATIENT
  Age: 50 Year
  Sex: Female

DRUGS (3)
  1. NEUPOGEN [Suspect]
     Indication: NEUTROPENIA
     Route: 058
     Dates: start: 20081114
  2. LENALIDOMIDE [Suspect]
     Route: 048
     Dates: start: 20080516, end: 20090415
  3. DEFERASIROX [Suspect]
     Route: 048
     Dates: start: 20080124

REACTIONS (1)
  - ACUTE MYELOID LEUKAEMIA [None]
